FAERS Safety Report 8991010 (Version 1)
Quarter: 2012Q4

REPORT INFORMATION
  Report Type: Spontaneous
  Country: US (occurrence: None)
  Receive Date: 20121227
  Receipt Date: 20121227
  Transmission Date: 20130627
  Serious: Yes (Other)
  Sender: FDA-Public Use
  Company Number: None

PATIENT
  Age: 63 Year
  Sex: Female
  Weight: 50.8 kg

DRUGS (3)
  1. VIMPAT [Suspect]
     Indication: PARTIAL SEIZURES
     Route: 048
     Dates: start: 20120730, end: 20121220
  2. VIMPAT [Suspect]
     Indication: CONVULSIONS GENERALIZED
     Route: 048
     Dates: start: 20120730, end: 20121220
  3. VIMPAT [Suspect]
     Indication: PARTIAL SEIZURES
     Route: 048
     Dates: start: 20120602, end: 20120730

REACTIONS (4)
  - Hypoaesthesia oral [None]
  - Paraesthesia oral [None]
  - Hypoaesthesia oral [None]
  - Paraesthesia oral [None]
